FAERS Safety Report 11326225 (Version 1)
Quarter: 2015Q3

REPORT INFORMATION
  Report Type: Spontaneous
  Country: US (occurrence: US)
  Receive Date: 20150731
  Receipt Date: 20150731
  Transmission Date: 20151125
  Serious: No
  Sender: FDA-Public Use
  Company Number: US-ROCHE-1420977

PATIENT
  Age: 45 Year
  Sex: Female

DRUGS (2)
  1. PEGASYS [Suspect]
     Active Substance: PEGINTERFERON ALFA-2A
     Indication: HEPATITIS
     Route: 065
     Dates: end: 201306
  2. RIBAVIRIN. [Suspect]
     Active Substance: RIBAVIRIN
     Indication: HEPATITIS
     Route: 065
     Dates: end: 201306

REACTIONS (5)
  - Haemoglobin decreased [Unknown]
  - Expired product administered [Unknown]
  - Fatigue [Unknown]
  - Blood iron decreased [Unknown]
  - Malaise [Unknown]

NARRATIVE: CASE EVENT DATE: 20140615
